FAERS Safety Report 8858746 (Version 4)
Quarter: 2013Q1

REPORT INFORMATION
  Report Type: Spontaneous
  Country: US (occurrence: US)
  Receive Date: 20121024
  Receipt Date: 20130104
  Transmission Date: 20140127
  Serious: Yes (Death, Other)
  Sender: FDA-Public Use
  Company Number: US-JNJFOC-20121007899

PATIENT
  Age: 84 Year
  Sex: Male
  Weight: 75.3 kg

DRUGS (13)
  1. ZYTIGA [Suspect]
     Indication: PROSTATE CANCER
     Route: 048
     Dates: start: 20120711, end: 20120718
  2. METFORMIN [Concomitant]
  3. GLIPIZIDE/METFORMIN [Concomitant]
     Dosage: 5/500
     Route: 065
  4. PLAVIX [Concomitant]
     Route: 065
     Dates: start: 2011
  5. HYOSCYAMINE [Concomitant]
     Indication: BLADDER SPASM
     Route: 065
     Dates: start: 201108
  6. PREDNISONE [Concomitant]
     Route: 065
  7. ZOLADEX [Concomitant]
     Route: 065
     Dates: start: 201011
  8. SIMVASTATIN [Concomitant]
     Route: 065
  9. TOPROL XL [Concomitant]
     Route: 065
  10. DIOVAN HCT [Concomitant]
     Dosage: 25/320MG
     Route: 065
  11. TERAZOSIN [Concomitant]
     Indication: BENIGN PROSTATIC HYPERPLASIA
     Dates: start: 2011
  12. ASPIRIN [Concomitant]
     Dates: start: 2011
  13. AVODART [Concomitant]
     Indication: BENIGN PROSTATIC HYPERPLASIA
     Dates: start: 2011

REACTIONS (4)
  - Metastasis [Unknown]
  - Death [Fatal]
  - Bone pain [Recovered/Resolved]
  - Arthralgia [Recovered/Resolved]
